FAERS Safety Report 5584295-7 (Version None)
Quarter: 2008Q1

REPORT INFORMATION
  Report Type: 
  Country: None (occurrence: None)
  Receive Date: 20080108
  Receipt Date: 20071231
  Transmission Date: 20080703
  Serious: Yes (Hospitalization)
  Sender: FDA-Public Use
  Company Number: B0501900A

PATIENT
  Age: 80 Year
  Sex: Female

DRUGS (8)
  1. AUGMENTIN '125' [Suspect]
     Indication: TOOTH ABSCESS
     Dosage: 3G PER DAY
     Route: 048
     Dates: start: 20071115, end: 20071120
  2. SERETIDE [Concomitant]
     Route: 065
  3. VENTOLIN [Concomitant]
     Route: 065
  4. CETIRIZINE HCL [Concomitant]
     Route: 065
  5. OROCAL [Concomitant]
     Route: 065
  6. ACTONEL [Concomitant]
     Route: 065
  7. LEVOTHYROX [Concomitant]
     Route: 065
  8. KARDEGIC [Concomitant]
     Route: 065

REACTIONS (3)
  - CLOSTRIDIAL INFECTION [None]
  - DIARRHOEA [None]
  - LIVER ABSCESS [None]
